FAERS Safety Report 23801894 (Version 2)
Quarter: 2024Q2

REPORT INFORMATION
  Report Type: Other
  Country: IN (occurrence: None)
  Receive Date: 20240501
  Receipt Date: 20240606
  Transmission Date: 20240716
  Serious: Yes (Death, Hospitalization)
  Sender: FDA-Public Use
  Company Number: IN-ROCHE-3551392

PATIENT
  Age: 54 Year
  Sex: Female

DRUGS (1)
  1. PERJETA [Suspect]
     Active Substance: PERTUZUMAB
     Indication: Breast cancer metastatic
     Route: 042
     Dates: start: 20240320

REACTIONS (2)
  - Weight decreased [Unknown]
  - Drug ineffective [Fatal]

NARRATIVE: CASE EVENT DATE: 20240510
